FAERS Safety Report 5211718-5 (Version None)
Quarter: 2007Q1

REPORT INFORMATION
  Report Type: 
  Country: None (occurrence: None)
  Receive Date: 20070116
  Receipt Date: 20070109
  Transmission Date: 20070707
  Serious: Yes (Death)
  Sender: FDA-Public Use
  Company Number: GXKR2007US00591

PATIENT
  Age: 25 Year
  Sex: Male
  Weight: 72.1 kg

DRUGS (2)
  1. MIRTAZAPINE [Suspect]
  2. VENLAFAXINE HCL [Concomitant]

REACTIONS (1)
  - COMPLETED SUICIDE [None]
